FAERS Safety Report 9364232 (Version 1)
Quarter: 2013Q2

REPORT INFORMATION
  Report Type: Spontaneous
  Country: FR (occurrence: FR)
  Receive Date: 20130624
  Receipt Date: 20130624
  Transmission Date: 20140414
  Serious: Yes (Death)
  Sender: FDA-Public Use
  Company Number: FR-TEVA-414236ISR

PATIENT
  Age: 85 Year
  Sex: Female

DRUGS (2)
  1. FUROSEMIDE TEVA 40 MG [Suspect]
  2. UNSPECIFIED HEART TREATMENT [Concomitant]
     Dosage: 1 DOSAGE FORMS DAILY;

REACTIONS (3)
  - Lung disorder [Fatal]
  - Gait disturbance [Fatal]
  - General physical health deterioration [Fatal]
